FAERS Safety Report 10211366 (Version 1)
Quarter: 2014Q2

REPORT INFORMATION
  Report Type: Spontaneous
  Country: US (occurrence: None)
  Receive Date: 20140530
  Receipt Date: 20140530
  Transmission Date: 20141212
  Serious: Yes (Disabling, Other)
  Sender: FDA-Public Use
  Company Number: None

PATIENT
  Age: 32 Year
  Sex: Female
  Weight: 68.04 kg

DRUGS (4)
  1. CYMBALTA [Suspect]
     Indication: BIPOLAR II DISORDER
     Dosage: 1 DOSE ONCE DAILY TAKEN BY MOUTH
     Route: 048
  2. CYMBALTA [Suspect]
     Indication: FIBROMYALGIA
     Dosage: 1 DOSE ONCE DAILY TAKEN BY MOUTH
     Route: 048
  3. CYMBALTA [Suspect]
     Indication: NEURALGIA
     Dosage: 1 DOSE ONCE DAILY TAKEN BY MOUTH
     Route: 048
  4. CYMBALTA [Suspect]
     Indication: HERPES ZOSTER
     Dosage: 1 DOSE ONCE DAILY TAKEN BY MOUTH
     Route: 048

REACTIONS (10)
  - Nausea [None]
  - Vomiting [None]
  - Hunger [None]
  - Salivary hypersecretion [None]
  - Memory impairment [None]
  - Feeling abnormal [None]
  - Gait disturbance [None]
  - Drooling [None]
  - Herpes zoster [None]
  - Neuralgia [None]
